FAERS Safety Report 9862191 (Version 1)
Quarter: 2014Q1

REPORT INFORMATION
  Report Type: Spontaneous
  Country: US (occurrence: None)
  Receive Date: 20140131
  Receipt Date: 20140131
  Transmission Date: 20141002
  Serious: Yes (Hospitalization)
  Sender: FDA-Public Use
  Company Number: None

PATIENT
  Sex: Male

DRUGS (10)
  1. TEMOZOLOMIDE [Suspect]
     Route: 048
     Dates: start: 20131031, end: 201312
  2. PRAVASTATIN [Concomitant]
  3. HYDROCHLOROTHIAZIDE [Concomitant]
  4. AGGFRENOX [Concomitant]
  5. FISH OIL [Concomitant]
  6. OMEGA 3 [Concomitant]
  7. TYLENOL W/CODEINE [Concomitant]
  8. FAMOTIDINE [Concomitant]
  9. DEXAMETHASONE [Concomitant]
  10. KEPPRA [Concomitant]

REACTIONS (1)
  - Thrombosis [None]
